FAERS Safety Report 4631403-8 (Version None)
Quarter: 2005Q2

REPORT INFORMATION
  Report Type: 
  Country: None (occurrence: None)
  Receive Date: 20050407
  Receipt Date: 20050323
  Transmission Date: 20051028
  Serious: Yes (Death)
  Sender: FDA-Public Use
  Company Number: 200503IM000098

PATIENT
  Age: 71 Year
  Sex: Male

DRUGS (4)
  1. ACTIMMUNE [Suspect]
     Indication: PULMONARY FIBROSIS
     Dosage: 200 UG, TIW, SUBCUTANEOUS
     Route: 058
     Dates: start: 20040901, end: 20050103
  2. FLOVENT [Concomitant]
  3. ALBUTEROL [Concomitant]
  4. KLOR-CON [Concomitant]

REACTIONS (4)
  - CARDIAC FAILURE CONGESTIVE [None]
  - DISEASE PROGRESSION [None]
  - INFLUENZA LIKE ILLNESS [None]
  - RENAL FAILURE ACUTE [None]
